FAERS Safety Report 11279510 (Version 2)
Quarter: 2015Q3

REPORT INFORMATION
  Report Type: Report from Study
  Country: US (occurrence: US)
  Receive Date: 20150717
  Receipt Date: 20150730
  Transmission Date: 20151125
  Serious: Yes (Hospitalization, Other)
  Sender: FDA-Public Use
  Company Number: US-BAYER-2015-181075

PATIENT
  Age: 52 Year
  Sex: Male
  Weight: 84 kg

DRUGS (14)
  1. STIVARGA [Suspect]
     Active Substance: REGORAFENIB
     Indication: COLON CANCER STAGE IV
     Dosage: 160 MG DAILY DOSE, TAKES 4 TABLETS FOR 21 DAYS ON, 7 DAYS OFF
     Route: 048
     Dates: start: 20150404, end: 20150413
  2. STIVARGA [Suspect]
     Active Substance: REGORAFENIB
     Indication: METASTASES TO LIVER
  3. CYMBALTA [Concomitant]
     Active Substance: DULOXETINE HYDROCHLORIDE
     Dosage: 60 MG, UNK
     Route: 048
  4. DEPAKOTE [Concomitant]
     Active Substance: DIVALPROEX SODIUM
     Dosage: 50 MG, UNK
     Route: 048
  5. ATIVAN [Concomitant]
     Active Substance: LORAZEPAM
     Dosage: 1 MG, UNK
     Dates: start: 20140814
  6. MORPHINE [Concomitant]
     Active Substance: MORPHINE
     Dosage: 15 MG, UNK
     Route: 048
     Dates: start: 20150324
  7. FOLFIRI [Concomitant]
     Active Substance: FLUOROURACIL\IRINOTECAN\LEUCOVORIN
  8. STIVARGA [Suspect]
     Active Substance: REGORAFENIB
     Indication: METASTASES TO LUNG
  9. METFORMIN [Concomitant]
     Active Substance: METFORMIN HYDROCHLORIDE
     Dosage: 1000 MG, BID
     Route: 048
     Dates: start: 20141013
  10. MORPHINE SULFATE EXTENDED-RELEASE [Concomitant]
     Active Substance: MORPHINE SULFATE
     Dosage: 15 MG, BID
  11. ACTOS [Concomitant]
     Active Substance: PIOGLITAZONE HYDROCHLORIDE
     Dosage: UNK
     Route: 048
  12. EMLA [Concomitant]
     Active Substance: LIDOCAINE\PRILOCAINE
     Dosage: UNK
     Route: 061
     Dates: start: 20150223
  13. PROMETHAZINE [Concomitant]
     Active Substance: PROMETHAZINE\PROMETHAZINE HYDROCHLORIDE
     Dosage: 12.5 MG, UNK
     Route: 048
  14. FOLFOX [Concomitant]
     Active Substance: FLUOROURACIL\LEUCOVORIN CALCIUM\OXALIPLATIN

REACTIONS (19)
  - Renal failure [Not Recovered/Not Resolved]
  - Chest pain [None]
  - Abdominal tenderness [None]
  - Asthenia [None]
  - Depression [None]
  - Anxiety [None]
  - Hepatic encephalopathy [None]
  - Pallor [None]
  - Fatigue [None]
  - Gait disturbance [None]
  - Vomiting [None]
  - Pleuritic pain [None]
  - Bone pain [None]
  - Pulmonary mass [None]
  - Malaise [None]
  - Nausea [None]
  - Decreased appetite [None]
  - Pneumonia [Recovered/Resolved]
  - Hepatic failure [Not Recovered/Not Resolved]

NARRATIVE: CASE EVENT DATE: 20150413
